FAERS Safety Report 7274416-2 (Version None)
Quarter: 2011Q1

REPORT INFORMATION
  Report Type: 
  Country: None (occurrence: None)
  Receive Date: 20110204
  Receipt Date: 20110131
  Transmission Date: 20110831
  Serious: Yes (Death)
  Sender: FDA-Public Use
  Company Number: US-GENZYME-CAMP-1001336

PATIENT
  Age: 51 Year
  Sex: Female

DRUGS (4)
  1. MELPHALAN [Concomitant]
     Indication: STEM CELL TRANSPLANT
  2. CAMPATH [Suspect]
     Indication: GRAFT VERSUS HOST DISEASE
     Dosage: UNK
     Route: 065
  3. GRANULOCYTE COLONY STIMULATING FACTOR [Concomitant]
     Indication: STEM CELL TRANSPLANT
  4. CORTICOSTEROIDS [Suspect]
     Indication: GRAFT VERSUS HOST DISEASE
     Dosage: UNK
     Route: 065

REACTIONS (1)
  - MULTIPLE MYELOMA [None]
